FAERS Safety Report 6719243-7 (Version None)
Quarter: 2010Q2

REPORT INFORMATION
  Report Type: 
  Country: None (occurrence: None)
  Receive Date: 20100507
  Receipt Date: 20100429
  Transmission Date: 20101027
  Serious: Yes (Other)
  Sender: FDA-Public Use
  Company Number: 8048364

PATIENT
  Sex: Female
  Weight: 52.6 kg

DRUGS (5)
  1. KEPPRA [Suspect]
     Indication: EPILEPSY
     Dosage: (2000 MG, DAILY ORAL)
     Route: 048
     Dates: start: 20070101
  2. MULTI-VITAMIN [Concomitant]
  3. PRENATAL [Concomitant]
  4. FOLIC ACID [Concomitant]
  5. NORCO [Concomitant]

REACTIONS (3)
  - ABORTION SPONTANEOUS [None]
  - DRUG EXPOSURE DURING PREGNANCY [None]
  - PREGNANCY [None]
